FAERS Safety Report 10444918 (Version 2)
Quarter: 2014Q3

REPORT INFORMATION
  Report Type: Spontaneous
  Country: IT (occurrence: IT)
  Receive Date: 20140910
  Receipt Date: 20140910
  Transmission Date: 20150326
  Serious: Yes (Other)
  Sender: FDA-Public Use
  Company Number: PHHY2014IT111094

PATIENT
  Age: 14 Year
  Sex: Female

DRUGS (2)
  1. TOLEP [Suspect]
     Active Substance: OXCARBAZEPINE
     Indication: PARTIAL SEIZURES
     Dosage: 1.5 DF (450 MG), DAILY
     Route: 048
     Dates: start: 20101002, end: 20101111
  2. KEPPRA [Suspect]
     Active Substance: LEVETIRACETAM
     Indication: PARTIAL SEIZURES
     Dosage: 1 DF (500 MG), DAILY
     Route: 048
     Dates: start: 20101010, end: 20101111

REACTIONS (4)
  - Head discomfort [Recovered/Resolved]
  - Trismus [Recovered/Resolved]
  - Drug ineffective [Recovered/Resolved]
  - Clonus [Recovered/Resolved]

NARRATIVE: CASE EVENT DATE: 20101111
